FAERS Safety Report 13689355 (Version 1)
Quarter: 2017Q2

REPORT INFORMATION
  Report Type: Spontaneous
  Country: US (occurrence: US)
  Receive Date: 20170625
  Receipt Date: 20170625
  Transmission Date: 20170830
  Serious: Yes (Other)
  Sender: FDA-Public Use
  Company Number: None

PATIENT
  Age: 21 Year
  Weight: 50 kg

DRUGS (1)
  1. ANTIPERSPIRANT [Suspect]
     Active Substance: ALUMINUM CHLOROHYDRATE

REACTIONS (3)
  - Drug ineffective [None]
  - Skin odour abnormal [None]
  - Condition aggravated [None]

NARRATIVE: CASE EVENT DATE: 20140903
